FAERS Safety Report 5729795-1 (Version None)
Quarter: 2008Q2

REPORT INFORMATION
  Report Type: 
  Country: None (occurrence: None)
  Receive Date: 20080501
  Receipt Date: 20080417
  Transmission Date: 20081010
  Serious: Yes (Other)
  Sender: FDA-Public Use
  Company Number: 2008000905

PATIENT
  Sex: Male

DRUGS (3)
  1. TARCEVA [Suspect]
     Indication: NON-SMALL CELL LUNG CANCER
     Dosage: (150 MG) (100 MG)
     Dates: start: 20070101
  2. ROCEPHIN [Suspect]
     Indication: PROSTATITIS
  3. CEFACLOR [Suspect]
     Indication: PROSTATITIS

REACTIONS (10)
  - ASTHENIA [None]
  - CONDITION AGGRAVATED [None]
  - ERYTHEMA [None]
  - FATIGUE [None]
  - HYPERHIDROSIS [None]
  - NERVOUS SYSTEM DISORDER [None]
  - PHOTOSENSITIVITY REACTION [None]
  - PROSTATITIS [None]
  - RASH [None]
  - UNEVALUABLE EVENT [None]
